FAERS Safety Report 15976359 (Version 4)
Quarter: 2019Q2

REPORT INFORMATION
  Report Type: Spontaneous
  Country: ES (occurrence: ES)
  Receive Date: 20190218
  Receipt Date: 20190415
  Transmission Date: 20190711
  Serious: Yes (Other)
  Sender: FDA-Public Use
  Company Number: ES-TEVA-2019-ES-1014320

PATIENT
  Age: 74 Year
  Sex: Female

DRUGS (2)
  1. CINQAERO 10 MG/ML VIAL 2.5 ML [Suspect]
     Active Substance: RESLIZUMAB
     Route: 042
  2. CINQAERO 10 MG/ML VIAL 10 ML [Suspect]
     Active Substance: RESLIZUMAB
     Route: 042

REACTIONS (2)
  - Myocardial infarction [Recovered/Resolved]
  - Acute myocardial infarction [Recovered/Resolved]

NARRATIVE: CASE EVENT DATE: 2019
